FAERS Safety Report 24814814 (Version 1)
Quarter: 2025Q1

REPORT INFORMATION
  Report Type: Spontaneous
  Country: CN (occurrence: CN)
  Receive Date: 20250107
  Receipt Date: 20250107
  Transmission Date: 20250409
  Serious: Yes (Other)
  Sender: AMGEN
  Company Number: CN-AMGEN-CHNSP2024257099

PATIENT
  Age: 34 Year
  Sex: Female

DRUGS (3)
  1. XGEVA [Suspect]
     Active Substance: DENOSUMAB
     Indication: Bone giant cell tumour
     Dosage: 120 MILLIGRAM, QMO
     Route: 058
  2. CALCIUM [Concomitant]
     Active Substance: CALCIUM
     Indication: Bone giant cell tumour
     Dosage: UNK UNK, QD, }500 MG
  3. VITAMIN D [Concomitant]
     Active Substance: VITAMIN D NOS
     Indication: Bone giant cell tumour
     Dosage: UNK UNK, QD, }400 IU

REACTIONS (1)
  - Bone giant cell tumour [Unknown]
